FAERS Safety Report 8736220 (Version 3)
Quarter: 2013Q2

REPORT INFORMATION
  Report Type: Spontaneous
  Country: US (occurrence: US)
  Receive Date: 20120822
  Receipt Date: 20130403
  Transmission Date: 20140414
  Serious: Yes (Hospitalization)
  Sender: FDA-Public Use
  Company Number: US-B.I. PHARMACEUTICALS,INC./RIDGEFIELD-2012-BP-19625BP

PATIENT
  Age: 65 Year
  Sex: Female
  Weight: 63.5 kg

DRUGS (11)
  1. PRADAXA [Suspect]
     Indication: ANTICOAGULANT THERAPY
     Dosage: 300 MG
     Route: 048
     Dates: start: 20110506, end: 20110815
  2. PRADAXA [Suspect]
     Indication: ATRIAL FIBRILLATION
  3. COUMADIN [Suspect]
     Indication: ATRIAL FIBRILLATION
     Dosage: 6 MG
     Route: 048
     Dates: start: 20110815
  4. DIGOXIN [Concomitant]
     Dosage: 250 MCG
     Route: 048
  5. MULTIVITAMIN [Concomitant]
  6. FUROSEMIDE [Concomitant]
     Dosage: 40 MG
     Route: 048
  7. METOPROLOL [Concomitant]
     Route: 048
  8. DIOVAN [Concomitant]
     Dosage: 80 MG
     Route: 048
  9. POTASSIUM CHLORIDE [Concomitant]
     Dosage: 10 MEQ
     Route: 048
  10. NITROGLYCERIN [Concomitant]
     Dosage: 2.5 MEQ
     Route: 048
  11. DRONEDARONE [Concomitant]
     Dosage: 400 MEQ
     Route: 048

REACTIONS (2)
  - Gastrointestinal haemorrhage [Recovered/Resolved]
  - Asthenia [Unknown]
